FAERS Safety Report 24573983 (Version 1)
Quarter: 2024Q4

REPORT INFORMATION
  Report Type: Spontaneous
  Country: US (occurrence: US)
  Receive Date: 20241104
  Receipt Date: 20241104
  Transmission Date: 20250114
  Serious: Yes (Death, Life-Threatening, Hospitalization)
  Sender: BOEHRINGER INGELHEIM
  Company Number: US-Komodo Health-a23aa0000041XSfAAM

PATIENT
  Age: 74 Year
  Sex: Female

DRUGS (1)
  1. GILOTRIF [Suspect]
     Active Substance: AFATINIB
     Indication: Lung neoplasm malignant
     Dates: start: 20231114, end: 20240117

REACTIONS (10)
  - Infection [Fatal]
  - Fatigue [Unknown]
  - Diarrhoea [Recovered/Resolved]
  - Heart rate increased [Recovered/Resolved]
  - Drug ineffective [Unknown]
  - Dry eye [Unknown]
  - Dizziness [Unknown]
  - Alopecia [Unknown]
  - Gastrointestinal pain [Unknown]
  - Vertigo [Unknown]

NARRATIVE: CASE EVENT DATE: 20231121
